FAERS Safety Report 14249632 (Version 2)
Quarter: 2017Q4

REPORT INFORMATION
  Report Type: Report from Study
  Country: CA (occurrence: CA)
  Receive Date: 20171205
  Receipt Date: 20171211
  Transmission Date: 20180321
  Serious: Yes (Hospitalization)
  Sender: FDA-Public Use
  Company Number: CA-BIOGEN-2017BI00491324

PATIENT
  Age: 41 Year
  Sex: Female

DRUGS (2)
  1. TYSABRI [Suspect]
     Active Substance: NATALIZUMAB
     Route: 065
  2. TYSABRI [Suspect]
     Active Substance: NATALIZUMAB
     Indication: MULTIPLE SCLEROSIS
     Dosage: INFUSED OVER 1 HOUR
     Route: 042
     Dates: start: 20081209

REACTIONS (4)
  - Abdominal pain [Not Recovered/Not Resolved]
  - Fibroma [Recovered/Resolved]
  - Vaginal haemorrhage [Recovered/Resolved with Sequelae]
  - Procedural pain [Recovered/Resolved]

NARRATIVE: CASE EVENT DATE: 20171123
